FAERS Safety Report 14045854 (Version 1)
Quarter: 2017Q4

REPORT INFORMATION
  Report Type: Spontaneous
  Country: FR (occurrence: FR)
  Receive Date: 20171005
  Receipt Date: 20171005
  Transmission Date: 20180321
  Serious: Yes (Hospitalization, Other)
  Sender: FDA-Public Use
  Company Number: FR-AMGEN-FRASP2017147947

PATIENT
  Age: 63 Year
  Sex: Male

DRUGS (5)
  1. VALACICLOVIR [Concomitant]
     Active Substance: VALACYCLOVIR HYDROCHLORIDE
     Indication: PROPHYLAXIS
     Dosage: 500 MG, BID
  2. SPECIAFOLDINE [Concomitant]
     Active Substance: FOLIC ACID
     Indication: PROPHYLAXIS
     Dosage: 5 MG, 3 TIMES/WK
  3. BACTRIM [Concomitant]
     Active Substance: SULFAMETHOXAZOLE\TRIMETHOPRIM
     Indication: PROPHYLAXIS
     Dosage: 1 G, 3 TIMES/WK
  4. AERIUS [Concomitant]
     Active Substance: DESLORATADINE
     Indication: PROPHYLAXIS
     Dosage: 1 DF, QD
  5. BLINCYTO [Suspect]
     Active Substance: BLINATUMOMAB
     Indication: ACUTE LYMPHOCYTIC LEUKAEMIA
     Dosage: 34 MCG, QD
     Route: 042
     Dates: start: 20170725, end: 20170811

REACTIONS (1)
  - Cerebellar syndrome [Recovering/Resolving]

NARRATIVE: CASE EVENT DATE: 20170811
